FAERS Safety Report 5828631-2 (Version None)
Quarter: 2008Q3

REPORT INFORMATION
  Report Type: 
  Country: None (occurrence: None)
  Receive Date: 20080731
  Receipt Date: 20080723
  Transmission Date: 20090109
  Serious: Yes (Hospitalization)
  Sender: FDA-Public Use
  Company Number: B0482367A

PATIENT
  Age: 30 Year
  Sex: Female
  Weight: 60 kg

DRUGS (3)
  1. LAPATINIB [Suspect]
     Dosage: 1250MG PER DAY
     Route: 048
     Dates: start: 20070504
  2. CAPECITABINE [Suspect]
     Dosage: 1500MG TWICE PER DAY
     Route: 048
     Dates: start: 20070504
  3. ZOMETA [Concomitant]
     Dosage: 4MG EVERY 3 WEEKS
     Route: 042
     Dates: start: 20061116

REACTIONS (2)
  - CATHETER RELATED INFECTION [None]
  - LIPASE INCREASED [None]
